FAERS Safety Report 17535367 (Version 4)
Quarter: 2020Q4

REPORT INFORMATION
  Report Type: Spontaneous
  Country: US (occurrence: US)
  Receive Date: 20200312
  Receipt Date: 20201030
  Transmission Date: 20210113
  Serious: No
  Sender: FDA-Public Use
  Company Number: US-AKCEA THERAPEUTICS-2019IS001470

PATIENT
  Age: 62 Year
  Sex: Male

DRUGS (10)
  1. VITAMIN A /00056001/ [Concomitant]
     Active Substance: RETINOL
     Route: 048
  2. ISSD (INTEGRATED SYRINGE SAFETY DEVICE) [Suspect]
     Active Substance: DEVICE
  3. OPIUM TINCTURE [Concomitant]
     Active Substance: MORPHINE
     Route: 065
  4. TACROLIMUS. [Concomitant]
     Active Substance: TACROLIMUS
     Route: 048
  5. DOLOBID [Concomitant]
     Active Substance: DIFLUNISAL
     Route: 048
     Dates: start: 201709
  6. CALCIUM + MAGNESIUM + ZINK [Concomitant]
     Route: 065
  7. CALCIUM [Concomitant]
     Active Substance: CALCIUM
     Route: 048
  8. TEGSEDI [Suspect]
     Active Substance: INOTERSEN SODIUM
     Indication: HEREDITARY NEUROPATHIC AMYLOIDOSIS
     Route: 058
     Dates: start: 201809
  9. TEGSEDI [Suspect]
     Active Substance: INOTERSEN SODIUM
     Route: 058
  10. ASPIRIN /00002701/ [Concomitant]
     Active Substance: ASPIRIN
     Route: 048

REACTIONS (9)
  - Drug ineffective [Unknown]
  - Diarrhoea [Unknown]
  - Injection site discolouration [Not Recovered/Not Resolved]
  - Adverse drug reaction [Not Recovered/Not Resolved]
  - Injection site pain [Not Recovered/Not Resolved]
  - Fatigue [Not Recovered/Not Resolved]
  - Injection site bruising [Not Recovered/Not Resolved]
  - Injection site erythema [Not Recovered/Not Resolved]
  - Nausea [Recovered/Resolved]

NARRATIVE: CASE EVENT DATE: 201809
